FAERS Safety Report 9342444 (Version 3)
Quarter: 2013Q3

REPORT INFORMATION
  Report Type: Report from Study
  Country: FR (occurrence: FR)
  Receive Date: 20130611
  Receipt Date: 20130717
  Transmission Date: 20140515
  Serious: Yes (Hospitalization)
  Sender: FDA-Public Use
  Company Number: PHHY2013FR057661

PATIENT
  Age: 80 Year
  Sex: Female
  Weight: 61 kg

DRUGS (2)
  1. AMN107 [Suspect]
     Indication: CHRONIC MYELOID LEUKAEMIA
     Route: 048
     Dates: start: 20110328, end: 201104
  2. AMN107 [Suspect]
     Dosage: 150 MG, QD
     Route: 048
     Dates: start: 20110408

REACTIONS (10)
  - Ischaemic stroke [Recovering/Resolving]
  - Cerebrovascular accident [Recovering/Resolving]
  - Hallucination, visual [Recovering/Resolving]
  - Central nervous system lesion [Unknown]
  - Hemianopia homonymous [Unknown]
  - Constipation [Unknown]
  - Dry skin [Unknown]
  - Hypercholesterolaemia [Unknown]
  - Alopecia [Unknown]
  - Arthralgia [Unknown]
